FAERS Safety Report 4459355-4 (Version None)
Quarter: 2004Q3

REPORT INFORMATION
  Report Type: 
  Country: None (occurrence: None)
  Receive Date: 20040927
  Receipt Date: 20040921
  Transmission Date: 20050211
  Serious: Yes (Other)
  Sender: FDA-Public Use
  Company Number: PHBS2004CA12580

PATIENT
  Sex: Female

DRUGS (2)
  1. TRILEPTAL [Suspect]
     Dosage: 1200 MG/D
     Route: 048
     Dates: start: 20040818
  2. RISPERDAL [Concomitant]

REACTIONS (1)
  - HYPOAESTHESIA ORAL [None]
